FAERS Safety Report 5642314-3 (Version None)
Quarter: 2008Q1

REPORT INFORMATION
  Report Type: 
  Country: None (occurrence: None)
  Receive Date: 20080225
  Receipt Date: 20080213
  Transmission Date: 20080703
  Serious: Yes (Hospitalization)
  Sender: FDA-Public Use
  Company Number: 2008-00203

PATIENT
  Age: 69 Year
  Sex: Male
  Weight: 92.7 kg

DRUGS (34)
  1. VELCADE [Suspect]
     Indication: MULTIPLE MYELOMA
     Dosage: 1.00 MG/M2
     Dates: start: 20060510, end: 20071214
  2. DEXAMETHASONE TAB [Suspect]
     Indication: MULTIPLE MYELOMA
     Dosage: 40.00 MG : 12.00 MG
     Dates: end: 20071214
  3. DEXAMETHASONE TAB [Suspect]
     Indication: MULTIPLE MYELOMA
     Dosage: 40.00 MG : 12.00 MG
     Dates: start: 20060513
  4. THALIDOMIDE                     (THALIMDOMIDE) TABLET [Suspect]
     Indication: MULTIPLE MYELOMA
     Dosage: 200.00 MG : 50.00 MG
     Dates: end: 20080102
  5. THALIDOMIDE                     (THALIMDOMIDE) TABLET [Suspect]
     Indication: MULTIPLE MYELOMA
     Dosage: 200.00 MG : 50.00 MG
     Dates: start: 20060513
  6. CISPLATIN [Suspect]
     Indication: MULTIPLE MYELOMA
     Dosage: 10.00 MG/M2 : 7.5 MG/M2
     Dates: end: 20070324
  7. CISPLATIN [Suspect]
     Indication: MULTIPLE MYELOMA
     Dosage: 10.00 MG/M2 : 7.5 MG/M2
     Dates: start: 20060513
  8. DOXORUBICIN HCL [Suspect]
     Indication: MULTIPLE MYELOMA
     Dosage: 10.00 MG/M2 : 7.50 MG/M2
     Dates: end: 20070324
  9. DOXORUBICIN HCL [Suspect]
     Indication: MULTIPLE MYELOMA
     Dosage: 10.00 MG/M2 : 7.50 MG/M2
     Dates: start: 20060513
  10. CYCLOPHOSPHAMIDE [Suspect]
     Indication: MULTIPLE MYELOMA
     Dosage: 400.00 MG/M2 : 300.00 MG/M2
     Dates: end: 20070324
  11. CYCLOPHOSPHAMIDE [Suspect]
     Indication: MULTIPLE MYELOMA
     Dosage: 400.00 MG/M2 : 300.00 MG/M2
     Dates: start: 20060513
  12. ETOPOSIDE [Suspect]
     Indication: MULTIPLE MYELOMA
     Dosage: 40.00 MG/M2 : 30 MG/M2
     Dates: end: 20070324
  13. ETOPOSIDE [Suspect]
     Indication: MULTIPLE MYELOMA
     Dosage: 40.00 MG/M2 : 30 MG/M2
     Dates: start: 20060513
  14. MELPHALAN                (MELPHALAN) VIAL [Suspect]
     Indication: MULTIPLE MYELOMA
     Dosage: 200.00 MG/M2
     Dates: start: 20060822, end: 20061028
  15. FLUNISOLIDE                     (FLUNISOLIDE) [Concomitant]
  16. ALLEGRA [Concomitant]
  17. ACYCLOVIR [Concomitant]
  18. DOCUSATE SODIUM              (DOCUSATE SODIUM) [Concomitant]
  19. OXYCODONE HCL [Concomitant]
  20. LEXAPRO [Concomitant]
  21. MEN'S ONE DAILY  (ERGOCALCIFEROL, VITAMIN B NOS, TOCOPHEROL, FOLIC ACI [Concomitant]
  22. RANITIDINE HYDROCHLORIDE [Concomitant]
  23. FOLIC ACID [Concomitant]
  24. OXYCONTIN [Concomitant]
  25. TESTOSTERONE ENANTHATE [Concomitant]
  26. LEVAQUIN [Concomitant]
  27. DIPHENYDRAMINE HYDROCHLORIDE           (DIPHENYDRAMINE HYDROCHLORIDE) [Concomitant]
  28. ACTIQ [Concomitant]
  29. FLUCONAZOLE [Concomitant]
  30. NEUPOGEN [Concomitant]
  31. SODIUM CHLORIDE 0.9% [Concomitant]
  32. OCTREOTIDE ACETATE            (OCTREOTIDE ACETATE) [Concomitant]
  33. LOMOTIL [Concomitant]
  34. ZOFRAN [Concomitant]

REACTIONS (1)
  - COLITIS [None]
